FAERS Safety Report 5655476-9 (Version None)
Quarter: 2008Q1

REPORT INFORMATION
  Report Type: 
  Country: None (occurrence: None)
  Receive Date: 20080307
  Receipt Date: 20080227
  Transmission Date: 20080703
  Serious: Yes (Other)
  Sender: FDA-Public Use
  Company Number: TR-ELI_LILLY_AND_COMPANY-TR200802006892

PATIENT
  Age: 34 Year
  Sex: Female
  Weight: 70 kg

DRUGS (2)
  1. HUMALOG MIX 75/25 [Suspect]
     Dosage: 24 IU, EACH MORNING
     Route: 058
     Dates: start: 20080109, end: 20080128
  2. HUMALOG MIX 75/25 [Suspect]
     Dosage: 16 IU, EACH EVENING
     Route: 058
     Dates: start: 20080109, end: 20080128

REACTIONS (2)
  - ABORTION SPONTANEOUS [None]
  - DRUG EXPOSURE DURING PREGNANCY [None]
